APPROVED DRUG PRODUCT: PRAZOSIN HYDROCHLORIDE
Active Ingredient: PRAZOSIN HYDROCHLORIDE
Strength: EQ 5MG BASE
Dosage Form/Route: CAPSULE;ORAL
Application: A072609 | Product #001
Applicant: WATSON LABORATORIES INC
Approved: May 16, 1989 | RLD: No | RS: No | Type: DISCN